FAERS Safety Report 6551139-6 (Version None)
Quarter: 2010Q1

REPORT INFORMATION
  Report Type: 
  Country: None (occurrence: None)
  Receive Date: 20100121
  Receipt Date: 20100107
  Transmission Date: 20100710
  Serious: No
  Sender: FDA-Public Use
  Company Number: 007428

PATIENT
  Age: 59 Year
  Sex: Female
  Weight: 54.7 kg

DRUGS (2)
  1. PLETAL [Suspect]
     Indication: LACUNAR INFARCTION
     Dosage: 100 MG, BID, ORAL
     Route: 048
     Dates: start: 20090811, end: 20090824
  2. RADICUT (EDARAVONE) [Concomitant]

REACTIONS (1)
  - ERYTHEMA MULTIFORME [None]
